FAERS Safety Report 19441630 (Version 1)
Quarter: 2021Q2

REPORT INFORMATION
  Report Type: Other
  Country: CA (occurrence: CA)
  Receive Date: 20210621
  Receipt Date: 20210621
  Transmission Date: 20210717
  Serious: Yes (Life-Threatening, Hospitalization, Other)
  Sender: FDA-Public Use
  Company Number: CA-APOTEX-2021AP014335

PATIENT
  Age: 42 Year
  Sex: Male

DRUGS (32)
  1. TAMIFLU [Suspect]
     Active Substance: OSELTAMIVIR PHOSPHATE
     Indication: INFECTIVE PULMONARY EXACERBATION OF CYSTIC FIBROSIS
  2. VANCOMYCIN HYDROCHLORIDE. [Suspect]
     Active Substance: VANCOMYCIN HYDROCHLORIDE
     Indication: CONDITION AGGRAVATED
  3. APO?TOBRAMYCIN [Suspect]
     Active Substance: TOBRAMYCIN
     Indication: INFLUENZA LIKE ILLNESS
     Dosage: UNK
     Route: 057
  4. APO?TOBRAMYCIN [Suspect]
     Active Substance: TOBRAMYCIN
     Indication: INFECTIVE PULMONARY EXACERBATION OF CYSTIC FIBROSIS
  5. CIPROFLOXACIN. [Suspect]
     Active Substance: CIPROFLOXACIN
     Indication: INFLUENZA LIKE ILLNESS
     Dosage: UNK
     Route: 048
  6. MEROPENEM. [Suspect]
     Active Substance: MEROPENEM
     Indication: CONDITION AGGRAVATED
  7. CICLESONIDE [Concomitant]
     Active Substance: CICLESONIDE
     Indication: PRODUCT USED FOR UNKNOWN INDICATION
     Dosage: UNK
     Route: 065
  8. VANCOMYCIN HYDROCHLORIDE. [Suspect]
     Active Substance: VANCOMYCIN HYDROCHLORIDE
     Indication: INFECTIVE PULMONARY EXACERBATION OF CYSTIC FIBROSIS
     Dosage: UNK
     Route: 042
  9. TOBRAMYCIN. [Suspect]
     Active Substance: TOBRAMYCIN
     Indication: INFECTIVE PULMONARY EXACERBATION OF CYSTIC FIBROSIS
     Dosage: UNK
     Route: 048
  10. DEOXYRIBONUCLEIC ACID [Concomitant]
     Active Substance: DEOXYRIBONUCLIEC ACID
     Indication: PRODUCT USED FOR UNKNOWN INDICATION
     Dosage: UNK
     Route: 065
  11. CAYSTON [Concomitant]
     Active Substance: AZTREONAM
     Indication: ANTIBIOTIC THERAPY
     Dosage: UNK
     Route: 065
  12. PULMOZYME [Concomitant]
     Active Substance: DORNASE ALFA
     Indication: INHALATION THERAPY
     Dosage: UNK
     Route: 065
  13. SODIUM CHLORIDE. [Concomitant]
     Active Substance: SODIUM CHLORIDE
     Indication: PRODUCT USED FOR UNKNOWN INDICATION
     Dosage: UNK
     Route: 065
  14. CIPROFLOXACIN. [Suspect]
     Active Substance: CIPROFLOXACIN
     Indication: INFECTIVE PULMONARY EXACERBATION OF CYSTIC FIBROSIS
  15. TOBRAMYCIN. [Suspect]
     Active Substance: TOBRAMYCIN
     Indication: INFLUENZA LIKE ILLNESS
  16. BUDESONIDE. [Concomitant]
     Active Substance: BUDESONIDE
     Indication: PRODUCT USED FOR UNKNOWN INDICATION
     Dosage: UNK
     Route: 065
  17. ISOPHANE INSULIN [Concomitant]
     Active Substance: INSULIN NOS
     Indication: PRODUCT USED FOR UNKNOWN INDICATION
     Dosage: UNK
     Route: 065
  18. OMALIZUMAB. [Concomitant]
     Active Substance: OMALIZUMAB
     Indication: PRODUCT USED FOR UNKNOWN INDICATION
     Dosage: UNK
     Route: 065
  19. APO?TOBRAMYCIN [Suspect]
     Active Substance: TOBRAMYCIN
     Indication: CONDITION AGGRAVATED
  20. MEROPENEM. [Suspect]
     Active Substance: MEROPENEM
     Indication: INFECTIVE PULMONARY EXACERBATION OF CYSTIC FIBROSIS
     Dosage: UNK
     Route: 042
  21. TOBRAMYCIN. [Suspect]
     Active Substance: TOBRAMYCIN
     Indication: INFECTIVE PULMONARY EXACERBATION OF CYSTIC FIBROSIS
     Dosage: UNK
     Route: 042
  22. BUDESONIDE;FORMOTEROL FUMARATE [Concomitant]
     Active Substance: BUDESONIDE\FORMOTEROL FUMARATE
     Indication: PRODUCT USED FOR UNKNOWN INDICATION
     Dosage: UNK
     Route: 065
  23. MONTELUKAST [Concomitant]
     Active Substance: MONTELUKAST SODIUM
     Indication: PRODUCT USED FOR UNKNOWN INDICATION
     Dosage: UNK
     Route: 065
  24. CIPROFLOXACIN. [Suspect]
     Active Substance: CIPROFLOXACIN
     Indication: CONDITION AGGRAVATED
  25. TAMIFLU [Suspect]
     Active Substance: OSELTAMIVIR PHOSPHATE
     Indication: INFLUENZA LIKE ILLNESS
     Dosage: UNK
     Route: 048
  26. TOBRAMYCIN. [Suspect]
     Active Substance: TOBRAMYCIN
     Indication: CONDITION AGGRAVATED
  27. TOBRAMYCIN. [Suspect]
     Active Substance: TOBRAMYCIN
     Indication: INFLUENZA LIKE ILLNESS
  28. AZITHROMYCIN ANHYDROUS. [Concomitant]
     Active Substance: AZITHROMYCIN ANHYDROUS
     Indication: CYSTIC FIBROSIS
     Dosage: UNK
     Route: 065
  29. TOBRAMYCIN. [Suspect]
     Active Substance: TOBRAMYCIN
     Indication: CONDITION AGGRAVATED
  30. HYDROCORTISONE. [Concomitant]
     Active Substance: HYDROCORTISONE
     Indication: PRODUCT USED FOR UNKNOWN INDICATION
     Dosage: UNK
     Route: 065
  31. PANCRELIPASE. [Concomitant]
     Active Substance: PANCRELIPASE
     Indication: PRODUCT USED FOR UNKNOWN INDICATION
     Dosage: UNK
     Route: 065
  32. VITAMINS NOS [Concomitant]
     Active Substance: VITAMINS
     Indication: PRODUCT USED FOR UNKNOWN INDICATION
     Dosage: UNK
     Route: 065

REACTIONS (4)
  - Rash morbilliform [Not Recovered/Not Resolved]
  - Toxic epidermal necrolysis [Not Recovered/Not Resolved]
  - Sepsis [Not Recovered/Not Resolved]
  - Staphylococcal sepsis [Not Recovered/Not Resolved]
